FAERS Safety Report 11360219 (Version 1)
Quarter: 2015Q3

REPORT INFORMATION
  Report Type: Spontaneous
  Country: US (occurrence: US)
  Receive Date: 20150810
  Receipt Date: 20150810
  Transmission Date: 20151125
  Serious: No
  Sender: FDA-Public Use
  Company Number: PHEH2014US006908

PATIENT
  Sex: Female

DRUGS (2)
  1. EXTAVIA [Suspect]
     Active Substance: INTERFERON BETA-1B
     Indication: MULTIPLE SCLEROSIS
     Dosage: 1 ML, QOD (0.25 MG)
     Route: 058
  2. EXTAVIA [Suspect]
     Active Substance: INTERFERON BETA-1B
     Dosage: 1 ML, QOD (0.25 MG)
     Route: 058
     Dates: start: 20140502

REACTIONS (11)
  - Malaise [Recovering/Resolving]
  - Drug ineffective [Not Recovered/Not Resolved]
  - Skin mass [Not Recovered/Not Resolved]
  - Injection site infection [Not Recovered/Not Resolved]
  - Injection site erosion [Not Recovered/Not Resolved]
  - Injection site discolouration [Not Recovered/Not Resolved]
  - Wound [Not Recovered/Not Resolved]
  - Scar [Not Recovered/Not Resolved]
  - Inflammation [Not Recovered/Not Resolved]
  - Injection site erythema [Not Recovered/Not Resolved]
  - Injection site discomfort [Not Recovered/Not Resolved]
